FAERS Safety Report 12067096 (Version 1)
Quarter: 2016Q1

REPORT INFORMATION
  Report Type: Spontaneous
  Country: US (occurrence: US)
  Receive Date: 20160210
  Receipt Date: 20160210
  Transmission Date: 20160526
  Serious: Yes (Other)
  Sender: FDA-Public Use
  Company Number: US-JNJFOC-20151210209

PATIENT
  Age: 71 Year
  Sex: Male

DRUGS (1)
  1. DARZALEX [Suspect]
     Active Substance: DARATUMUMAB
     Indication: PLASMA CELL MYELOMA
     Route: 042
     Dates: start: 20151208

REACTIONS (3)
  - Oxygen saturation decreased [Unknown]
  - Respiratory distress [Unknown]
  - Chills [Unknown]

NARRATIVE: CASE EVENT DATE: 20151208
